FAERS Safety Report 6712004-4 (Version None)
Quarter: 2010Q2

REPORT INFORMATION
  Report Type: 
  Country: None (occurrence: None)
  Receive Date: 20100505
  Receipt Date: 20100423
  Transmission Date: 20101027
  Serious: Yes (Other)
  Sender: FDA-Public Use
  Company Number: US-PFIZER INC-2010043561

PATIENT
  Sex: Female
  Weight: 85.27 kg

DRUGS (19)
  1. SUTENT [Suspect]
     Indication: NEOPLASM MALIGNANT
     Dosage: 50 MG, 1X/DAY
     Route: 048
     Dates: start: 20090508
  2. COZAAR [Concomitant]
     Indication: HYPERTENSION
     Dosage: UNK
  3. INSULIN [Concomitant]
     Indication: DIABETES MELLITUS
     Dosage: UNK
  4. LEVOXYL [Concomitant]
     Indication: THYROID DISORDER
     Dosage: 0.1 MG, UNK
  5. CENESTIN [Concomitant]
     Dosage: 0.9
  6. NORVASC [Concomitant]
     Indication: HYPERTENSION
     Dosage: 5 MG, UNK
  7. METFORMIN [Concomitant]
     Dosage: UNK
  8. NEXIUM [Concomitant]
     Dosage: UNK
  9. ACETYLSALICYLIC ACID [Concomitant]
     Dosage: UNK
  10. ZETIA [Concomitant]
     Dosage: 10 MG, 1X/DAY
  11. INSULIN LISPRO [Concomitant]
     Dosage: UNK
  12. MONTELUKAST [Concomitant]
     Dosage: 10 MG, AS NEEDED
  13. ZANTAC [Concomitant]
     Dosage: 150 MG, DAILY
  14. ALLEGRA [Concomitant]
     Dosage: 180 MG, AS NEEDED
  15. FLOVENT [Concomitant]
     Dosage: UNK
  16. FORADIL [Concomitant]
     Dosage: UNK
  17. ALBUTEROL [Concomitant]
     Dosage: UNK
  18. LANTUS [Concomitant]
     Dosage: UNK
  19. XOLAIR [Concomitant]
     Dosage: 300 MG, MONTHLY

REACTIONS (4)
  - ASTHENIA [None]
  - CATARACT [None]
  - DRY SKIN [None]
  - PARAESTHESIA [None]
